FAERS Safety Report 23099397 (Version 1)
Quarter: 2023Q4

REPORT INFORMATION
  Report Type: Spontaneous
  Country: CL (occurrence: CL)
  Receive Date: 20231024
  Receipt Date: 20231024
  Transmission Date: 20240110
  Serious: Yes (Hospitalization)
  Sender: FDA-Public Use
  Company Number: CL-MYLANLABS-2023M1111399

PATIENT
  Age: 50 Year
  Sex: Female

DRUGS (1)
  1. CLOZAPINE [Suspect]
     Active Substance: CLOZAPINE
     Indication: Schizophrenia
     Dosage: 400 MILLIGRAM, QD
     Route: 048
     Dates: start: 19981119

REACTIONS (1)
  - COVID-19 [Unknown]

NARRATIVE: CASE EVENT DATE: 20231010
